FAERS Safety Report 6561532-3 (Version None)
Quarter: 2010Q1

REPORT INFORMATION
  Report Type: 
  Country: None (occurrence: None)
  Receive Date: 20100130
  Receipt Date: 20091020
  Transmission Date: 20100710
  Serious: No
  Sender: FDA-Public Use
  Company Number: US-ABBOTT-09P-163-0604593-00

PATIENT
  Sex: Female
  Weight: 62.198 kg

DRUGS (2)
  1. HUMIRA [Suspect]
     Indication: ANKYLOSING SPONDYLITIS
     Dosage: ALTERNATES BETWEEN EVERY 2 WEEKS AND WEEKLY DEPENDING HOW SHE FEELS
     Dates: start: 20070101
  2. MOBIC [Concomitant]
     Indication: ANKYLOSING SPONDYLITIS

REACTIONS (3)
  - NASOPHARYNGITIS [None]
  - PAIN [None]
  - SINUS CONGESTION [None]
